FAERS Safety Report 6936453-4 (Version None)
Quarter: 2010Q3

REPORT INFORMATION
  Report Type: 
  Country: None (occurrence: None)
  Receive Date: 20100823
  Receipt Date: 20100721
  Transmission Date: 20110219
  Serious: Yes (Other)
  Sender: FDA-Public Use
  Company Number: JP-ROCHE-678870

PATIENT
  Sex: Male
  Weight: 67 kg

DRUGS (16)
  1. AVASTIN [Suspect]
     Indication: RECTAL CANCER RECURRENT
     Route: 041
     Dates: start: 20091027, end: 20091027
  2. AVASTIN [Suspect]
     Route: 041
     Dates: start: 20091110, end: 20091110
  3. AVASTIN [Suspect]
     Route: 041
     Dates: start: 20100209
  4. ELPLAT [Suspect]
     Indication: RECTAL CANCER RECURRENT
     Route: 041
     Dates: start: 20091027, end: 20091027
  5. ELPLAT [Suspect]
     Route: 041
     Dates: start: 20091110, end: 20091110
  6. FLUOROURACIL [Suspect]
     Indication: RECTAL CANCER RECURRENT
     Dosage: ROUTE: INTRAVENOUS BOLUS
     Route: 042
     Dates: start: 20091027, end: 20091027
  7. FLUOROURACIL [Suspect]
     Dosage: ROUTE: INTRAVENOUS DRIP
     Route: 042
     Dates: start: 20091027, end: 20091029
  8. FLUOROURACIL [Suspect]
     Dosage: ROUTE: INTRAVENOUS BOLUS
     Route: 042
     Dates: start: 20091110, end: 20091110
  9. FLUOROURACIL [Suspect]
     Dosage: ROUTE: INTRAVENOUS DRIP
     Route: 042
     Dates: start: 20091110, end: 20091112
  10. ISOVORIN [Suspect]
     Indication: RECTAL CANCER RECURRENT
     Route: 041
     Dates: start: 20091027, end: 20091027
  11. ISOVORIN [Suspect]
     Route: 041
     Dates: start: 20091110, end: 20091110
  12. GRANISETRON HYDROCHLORIDE [Concomitant]
     Route: 041
     Dates: start: 20091027, end: 20091027
  13. GRANISETRON HYDROCHLORIDE [Concomitant]
     Route: 041
     Dates: start: 20091110, end: 20091110
  14. DEXART [Concomitant]
     Route: 041
     Dates: start: 20091027, end: 20091027
  15. DEXART [Concomitant]
     Route: 041
     Dates: start: 20091110, end: 20091110
  16. LOPEMIN [Concomitant]
     Dosage: TAKEN AS NEEDED
     Route: 048
     Dates: start: 20091110

REACTIONS (11)
  - ABDOMINAL PAIN [None]
  - ABSCESS [None]
  - ANAL FISTULA [None]
  - C-REACTIVE PROTEIN INCREASED [None]
  - DIARRHOEA [None]
  - GASTROINTESTINAL PERFORATION [None]
  - MUSCULOSKELETAL PAIN [None]
  - NAUSEA [None]
  - PYREXIA [None]
  - RASH [None]
  - VOMITING [None]
